FAERS Safety Report 15961105 (Version 2)
Quarter: 2019Q1

REPORT INFORMATION
  Report Type: Spontaneous
  Country: US (occurrence: US)
  Receive Date: 20190214
  Receipt Date: 20190218
  Transmission Date: 20190417
  Serious: No
  Sender: FDA-Public Use
  Company Number: US-PFIZER INC-2018446881

PATIENT
  Age: 68 Year
  Sex: Female

DRUGS (2)
  1. FASLODEX [Concomitant]
     Active Substance: FULVESTRANT
     Dosage: UNK
  2. IBRANCE [Suspect]
     Active Substance: PALBOCICLIB
     Indication: BREAST CANCER METASTATIC
     Dosage: 125 MG, CYCLIC (THREE WEEKS ON AND ONE WEEK OFF)

REACTIONS (6)
  - Stress [Unknown]
  - Stomatitis [Unknown]
  - Gingival erythema [Unknown]
  - Gingival pain [Unknown]
  - Noninfective gingivitis [Unknown]
  - Immune system disorder [Unknown]
